FAERS Safety Report 7242488-7 (Version None)
Quarter: 2011Q1

REPORT INFORMATION
  Report Type: 
  Country: None (occurrence: None)
  Receive Date: 20110125
  Receipt Date: 20110114
  Transmission Date: 20110831
  Serious: No
  Sender: FDA-Public Use
  Company Number: US-BIOGENIDEC-2011BI002585

PATIENT
  Sex: Female

DRUGS (2)
  1. TYSABRI [Suspect]
     Indication: MULTIPLE SCLEROSIS
     Route: 042
     Dates: start: 20080123
  2. TYSABRI [Suspect]
     Route: 042
     Dates: start: 20050114

REACTIONS (8)
  - PYREXIA [None]
  - URINARY TRACT INFECTION [None]
  - BALANCE DISORDER [None]
  - NAUSEA [None]
  - CHILLS [None]
  - CHROMATURIA [None]
  - ADVERSE DRUG REACTION [None]
  - HEADACHE [None]
